FAERS Safety Report 9741727 (Version 3)
Quarter: 2014Q1

REPORT INFORMATION
  Report Type: Report from Study
  Country: CA (occurrence: CA)
  Receive Date: 20131210
  Receipt Date: 20140124
  Transmission Date: 20141002
  Serious: Yes (Other)
  Sender: FDA-Public Use
  Company Number: CA-ROCHE-1312806

PATIENT
  Sex: Female

DRUGS (8)
  1. PEGASYS [Suspect]
     Indication: CHRONIC HEPATITIS C
     Dosage: 180 MCG / 0.5 ML PRE FILLED SYRINGE
     Route: 058
     Dates: start: 20131028
  2. COPEGUS [Suspect]
     Indication: CHRONIC HEPATITIS C
     Dosage: 35 TABLETS PER WEEK
     Route: 048
     Dates: start: 20131028
  3. VICTRELIS [Suspect]
     Indication: CHRONIC HEPATITIS C
     Route: 048
     Dates: start: 20131125
  4. CLONAZEPAM [Concomitant]
     Route: 065
  5. BACLOFEN [Concomitant]
  6. SEROQUEL [Concomitant]
  7. CIPRALEX [Concomitant]
  8. VITAMIN B12 [Concomitant]
     Dosage: MONTHLY
     Route: 065

REACTIONS (1)
  - Paralysis [Not Recovered/Not Resolved]
